FAERS Safety Report 20976518 (Version 1)
Quarter: 2022Q2

REPORT INFORMATION
  Report Type: Spontaneous
  Country: US (occurrence: US)
  Receive Date: 20220617
  Receipt Date: 20220617
  Transmission Date: 20220721
  Serious: No
  Sender: FDA-Public Use
  Company Number: US-BRISTOL-MYERS SQUIBB COMPANY-2022-054696

PATIENT
  Age: 77 Year
  Sex: Male

DRUGS (2)
  1. REVLIMID [Suspect]
     Active Substance: LENALIDOMIDE
     Indication: Renal cyst
     Dosage: 7 DAYS OFF
     Route: 048
     Dates: start: 20190228
  2. POMALYST [Concomitant]
     Active Substance: POMALIDOMIDE

REACTIONS (1)
  - Platelet count decreased [Unknown]
